FAERS Safety Report 21094390 (Version 6)
Quarter: 2022Q4

REPORT INFORMATION
  Report Type: Spontaneous
  Country: CA (occurrence: CA)
  Receive Date: 20220718
  Receipt Date: 20221130
  Transmission Date: 20230112
  Serious: Yes (Hospitalization, Other)
  Sender: FDA-Public Use
  Company Number: CA-PFIZER INC-202200581056

PATIENT
  Age: 68 Year
  Sex: Male
  Weight: 72 kg

DRUGS (5)
  1. ZIRABEV [Suspect]
     Active Substance: BEVACIZUMAB-BVZR
     Indication: Hereditary haemorrhagic telangiectasia
     Dosage: 5 MG/KG (365MG) START IV Q 2 WEEKS X 6 DOSES THEN MAINTENANCE Q 4 WEEKS X 3
     Route: 042
  2. ZIRABEV [Suspect]
     Active Substance: BEVACIZUMAB-BVZR
     Indication: Gastrointestinal vascular malformation haemorrhagic
     Dosage: 365 MG, IV, LEFT ANTECUBITAL, Q2 WEEKS, 6 THEN MAINTENANCE Q4 WEEKS X 3
     Route: 042
     Dates: start: 20220530
  3. ZIRABEV [Suspect]
     Active Substance: BEVACIZUMAB-BVZR
     Dosage: 365 MG, IV Q2 WEEKS, 6 DOSES THEN MAINTENANCE Q4 WEEKS X 3 THEN REASSESS
     Route: 042
     Dates: start: 20220614
  4. ZIRABEV [Suspect]
     Active Substance: BEVACIZUMAB-BVZR
     Dosage: 365 MG, IV Q2 WEEKS, 6 DOSES THEN MAINTENANCE Q4 WEEKS X 3 THEN REASSESS
     Route: 042
     Dates: start: 20220628, end: 20220628
  5. TRANEXAMIC ACID [Concomitant]
     Active Substance: TRANEXAMIC ACID
     Indication: Epistaxis
     Dosage: 1000 MG, 4X/DAY
     Dates: start: 202109

REACTIONS (10)
  - Appendicitis [Unknown]
  - Abscess [Unknown]
  - Epilepsy [Unknown]
  - Haemorrhage [Not Recovered/Not Resolved]
  - Arteriovenous malformation [Unknown]
  - Gastrointestinal haemorrhage [Unknown]
  - Epistaxis [Not Recovered/Not Resolved]
  - Disease recurrence [Not Recovered/Not Resolved]
  - Vasodilatation [Not Recovered/Not Resolved]
  - Off label use [Unknown]

NARRATIVE: CASE EVENT DATE: 20220101
